FAERS Safety Report 5505046-8 (Version None)
Quarter: 2007Q4

REPORT INFORMATION
  Report Type: 
  Country: None (occurrence: None)
  Receive Date: 20071102
  Receipt Date: 20071025
  Transmission Date: 20080405
  Serious: Yes (Hospitalization)
  Sender: FDA-Public Use
  Company Number: US-ROCHE-527765

PATIENT
  Age: 54 Year
  Sex: Female

DRUGS (2)
  1. XELODA [Suspect]
     Route: 065
  2. TYKERB [Concomitant]
     Route: 065

REACTIONS (5)
  - DEHYDRATION [None]
  - DIARRHOEA [None]
  - MUCOUS MEMBRANE DISORDER [None]
  - ORAL DISORDER [None]
  - SEPSIS [None]
